FAERS Safety Report 12285688 (Version 1)
Quarter: 2016Q2

REPORT INFORMATION
  Report Type: Spontaneous
  Country: US (occurrence: None)
  Receive Date: 20160419
  Receipt Date: 20160419
  Transmission Date: 20160815
  Serious: No
  Sender: FDA-Public Use
  Company Number: None

PATIENT
  Age: 46 Year
  Sex: Female
  Weight: 78.02 kg

DRUGS (1)
  1. SCOPOLAMINE [Suspect]
     Active Substance: SCOPOLAMINE
     Indication: PROCEDURAL NAUSEA
     Dosage: 1 PATCH(ES) AS NEEDED APPLIED AS MEDICATED PATCH TO SKIN
     Dates: start: 20160415, end: 20160417

REACTIONS (11)
  - Visual acuity reduced [None]
  - Mydriasis [None]
  - Wheezing [None]
  - Cough [None]
  - Ocular discomfort [None]
  - Halo vision [None]
  - Vision blurred [None]
  - Application site pruritus [None]
  - Photophobia [None]
  - Eye pain [None]
  - Pruritus generalised [None]

NARRATIVE: CASE EVENT DATE: 20160417
